FAERS Safety Report 24148541 (Version 1)
Quarter: 2024Q3

REPORT INFORMATION
  Report Type: Report from Study
  Country: CO (occurrence: CO)
  Receive Date: 20240729
  Receipt Date: 20240729
  Transmission Date: 20241016
  Serious: Yes (Hospitalization, Other)
  Sender: BAYER
  Company Number: CO-BAYER-2024A063382

PATIENT
  Age: 58 Year
  Sex: Female

DRUGS (1)
  1. ADEMPAS [Suspect]
     Active Substance: RIOCIGUAT
     Indication: Pulmonary hypertension
     Dosage: 2.5 MG, Q8HR
     Dates: start: 20170603

REACTIONS (12)
  - Respiratory disorder [Recovered/Resolved with Sequelae]
  - Gastritis [Recovered/Resolved with Sequelae]
  - Monoplegia [Recovered/Resolved]
  - Dependence on oxygen therapy [Recovered/Resolved]
  - Therapeutic procedure [None]
  - Fluid retention [Recovered/Resolved with Sequelae]
  - Pain in extremity [None]
  - Peripheral swelling [None]
  - Oedema peripheral [None]
  - Intra-abdominal fluid collection [None]
  - Product dose omission issue [None]
  - Product availability issue [None]

NARRATIVE: CASE EVENT DATE: 20240510
